FAERS Safety Report 9784545 (Version 2)
Quarter: 2013Q4

REPORT INFORMATION
  Report Type: Report from Study
  Country: US (occurrence: US)
  Receive Date: 20131226
  Receipt Date: 20131226
  Transmission Date: 20140711
  Serious: Yes (Hospitalization, Other)
  Sender: FDA-Public Use
  Company Number: US-ABBVIE-13P-163-1176268-00

PATIENT
  Age: 60 Year
  Sex: Male
  Weight: 55.39 kg

DRUGS (9)
  1. HUMIRA [Suspect]
     Indication: CROHN^S DISEASE
     Dosage: LOADING DOSE
     Route: 058
     Dates: start: 20131120, end: 20131204
  2. HUMIRA [Suspect]
     Route: 058
     Dates: start: 20131204
  3. ASPIRIN [Concomitant]
     Indication: CORONARY ARTERY DISEASE
  4. AMLODIPINE [Concomitant]
     Indication: HYPERTENSION
  5. METOPROLOL [Concomitant]
     Indication: HYPERTENSION
  6. ENALAPRIL [Concomitant]
     Indication: HYPERTENSION
  7. SIMVASTATIN [Concomitant]
     Indication: HYPERLIPIDAEMIA
  8. NIASPAN [Concomitant]
     Indication: PRODUCT USED FOR UNKNOWN INDICATION
  9. TRAMADOL [Concomitant]
     Indication: PAIN

REACTIONS (7)
  - Muscle spasms [Recovering/Resolving]
  - Vomiting [Recovered/Resolved]
  - Abdominal pain upper [Not Recovered/Not Resolved]
  - Abdominal distension [Recovered/Resolved]
  - Crohn^s disease [Unknown]
  - White blood cell count increased [Unknown]
  - Enteritis [Unknown]
